FAERS Safety Report 4423750-X (Version None)
Quarter: 2004Q3

REPORT INFORMATION
  Report Type: 
  Country: None (occurrence: None)
  Receive Date: 20040805
  Receipt Date: 20040729
  Transmission Date: 20050211
  Serious: Yes (Life-Threatening)
  Sender: FDA-Public Use
  Company Number: 2004AP03727

PATIENT
  Age: 73 Year
  Sex: Male

DRUGS (3)
  1. XYLOCAINE [Suspect]
     Dosage: 50 MG DAILY
     Dates: start: 20030501
  2. ANTITOXIC SERUM [Suspect]
     Dates: start: 20030501
  3. ADRENAL HORMONE PREPARATIONS [Concomitant]

REACTIONS (4)
  - ANAPHYLACTOID SHOCK [None]
  - DEPRESSED LEVEL OF CONSCIOUSNESS [None]
  - HYPOXIA [None]
  - RENAL FAILURE ACUTE [None]
